FAERS Safety Report 13696855 (Version 2)
Quarter: 2017Q3

REPORT INFORMATION
  Report Type: Report from Study
  Country: IT (occurrence: IT)
  Receive Date: 20170628
  Receipt Date: 20170719
  Transmission Date: 20171127
  Serious: Yes (Hospitalization)
  Sender: FDA-Public Use
  Company Number: IT-TEVA-780281ACC

PATIENT
  Age: 44 Year
  Sex: Female
  Weight: 49 kg

DRUGS (8)
  1. DOXORUBICINA ACCORD HEALTHCARE ITALIA - 2MG/ML [Suspect]
     Active Substance: DOXORUBICIN HYDROCHLORIDE
     Indication: NON-HODGKIN^S LYMPHOMA
     Dosage: 15 MG
     Route: 042
     Dates: start: 20170228, end: 20170607
  2. VINCRISTINA TEVA - TEVA PHARMA B.V. [Suspect]
     Active Substance: VINCRISTINE
     Indication: NON-HODGKIN^S LYMPHOMA
     Dosage: 40 MG
     Route: 042
     Dates: start: 20170228, end: 20170607
  3. KLACID - BGP PRODUCTS S.R.L. (CLARITHROMYCI N) [Interacting]
     Active Substance: CLARITHROMYCIN
     Indication: ANTIBIOTIC PROPHYLAXIS
     Dosage: 1000 MG?
     Route: 048
     Dates: start: 20170201, end: 20170530
  4. ETOPOSIDE TEVA - 20 MG/ML CONCENTRATO PER SOLUZIONE PER INFUSIONE - TE [Suspect]
     Active Substance: ETOPOSIDE
     Indication: NON-HODGKIN^S LYMPHOMA
     Dosage: 70 MG
     Route: 042
     Dates: start: 20170228, end: 20170607
  5. RIFADIN [Interacting]
     Active Substance: RIFAMPIN
     Indication: ANTIBIOTIC PROPHYLAXIS
     Route: 048
     Dates: start: 20170201, end: 20170530
  6. ETAPIAM [Interacting]
     Active Substance: ETHAMBUTOL HYDROCHLORIDE
     Indication: ANTIBIOTIC PROPHYLAXIS
     Dosage: 1200 MG
     Route: 048
     Dates: start: 20170201, end: 20170530
  7. ENDOXAN BAXTER - 1 G POLVERE PER SOLUZIONE INIETTABILE [Suspect]
     Active Substance: CYCLOPHOSPHAMIDE
     Indication: NON-HODGKIN^S LYMPHOMA
     Dosage: 720 MG
     Route: 042
     Dates: start: 20170303, end: 20170611
  8. MABTHERA [Suspect]
     Active Substance: RITUXIMAB
     Indication: NON-HODGKIN^S LYMPHOMA
     Dosage: 500 MG
     Route: 042
     Dates: start: 20170327, end: 20170606

REACTIONS (2)
  - Leukopenia [Unknown]
  - Drug interaction [Unknown]

NARRATIVE: CASE EVENT DATE: 20170508
